FAERS Safety Report 7918394-9 (Version None)
Quarter: 2011Q4

REPORT INFORMATION
  Report Type: 
  Country: None (occurrence: None)
  Receive Date: 20111114
  Receipt Date: 20111103
  Transmission Date: 20120403
  Serious: Yes (Other)
  Sender: FDA-Public Use
  Company Number: 1100979

PATIENT
  Age: 48 Year
  Sex: Female

DRUGS (1)
  1. OXALIPLATIN [Suspect]
     Indication: COLON CANCER
     Dosage: 156.5 MG MILLIGRAM(S), INTRAVENOUS
     Route: 042
     Dates: start: 20111012, end: 20111012

REACTIONS (4)
  - CHILLS [None]
  - TACHYCARDIA [None]
  - PYREXIA [None]
  - NASOPHARYNGITIS [None]
